FAERS Safety Report 20054734 (Version 1)
Quarter: 2021Q4

REPORT INFORMATION
  Report Type: Spontaneous
  Country: US (occurrence: None)
  Receive Date: 20211109
  Receipt Date: 20211109
  Transmission Date: 20220303
  Serious: No
  Sender: FDA-Public Use
  Company Number: None

PATIENT
  Sex: Female

DRUGS (3)
  1. HUMIRA [Suspect]
     Active Substance: ADALIMUMAB
     Indication: Rheumatoid arthritis
     Dosage: FREQUENCY : ONCE;INJECT 80MG  PEN UNDER THE SKIN ON DAY 1, THEN  40MG  PEN ON DAY8, THEN 40MG EVERY
     Route: 058
  2. HUMIRA [Suspect]
     Active Substance: ADALIMUMAB
     Indication: Psoriasis
     Dosage: OTHER FREQUENCY : DAY 8;?
     Route: 058
  3. HUMIRA [Suspect]
     Active Substance: ADALIMUMAB
     Dosage: OTHER FREQUENCY : EVERY 14 DAYS;?
     Route: 058

REACTIONS (7)
  - Joint swelling [None]
  - Arthralgia [None]
  - Condition aggravated [None]
  - Neck pain [None]
  - Back pain [None]
  - Symptom recurrence [None]
  - Intervertebral disc disorder [None]
